FAERS Safety Report 9538424 (Version 1)
Quarter: 2013Q3

REPORT INFORMATION
  Report Type: Spontaneous
  Country: US (occurrence: US)
  Receive Date: 20130920
  Receipt Date: 20130920
  Transmission Date: 20140515
  Serious: No
  Sender: FDA-Public Use
  Company Number: US-PFIZER INC-2013268754

PATIENT
  Sex: Female

DRUGS (4)
  1. ADVIL [Suspect]
     Indication: BACK PAIN
     Dosage: TWO LIQUIGELS, ONCE A DAY
     Route: 048
     Dates: start: 201309
  2. BENICAR [Concomitant]
     Indication: HYPERTENSION
     Dosage: 40MG ONCE A DAY
  3. SYNTHROID [Concomitant]
     Indication: THYROID DISORDER
     Dosage: UNK, ONCE A DAY
  4. LIPITOR [Concomitant]
     Dosage: UNK,ONCE A DAY

REACTIONS (1)
  - Drug effect incomplete [Unknown]
